FAERS Safety Report 8215324-X (Version None)
Quarter: 2012Q1

REPORT INFORMATION
  Report Type: 
  Country: None (occurrence: None)
  Receive Date: 20120229
  Receipt Date: 20111022
  Transmission Date: 20120608
  Serious: Yes (Other)
  Sender: FDA-Public Use
  Company Number: PHEH2011US07597

PATIENT
  Age: 22 Year
  Sex: Male

DRUGS (6)
  1. OXYCODONE HCL [Concomitant]
  2. NEORAL [Suspect]
     Indication: BONE MARROW TRANSPLANT
     Dosage: 100 MG, QID, ORAL
     Route: 048
  3. LEVAQUIN [Concomitant]
  4. ZOFRAN [Concomitant]
  5. COMPAZINE [Concomitant]
  6. ATIVAN [Concomitant]

REACTIONS (1)
  - LEUKAEMIA [None]
